FAERS Safety Report 6495166-6 (Version None)
Quarter: 2009Q4

REPORT INFORMATION
  Report Type: 
  Country: None (occurrence: None)
  Receive Date: 20091214
  Receipt Date: 20090611
  Transmission Date: 20100525
  Serious: No
  Sender: FDA-Public Use
  Company Number: US-BRISTOL-MYERS SQUIBB COMPANY-14616577

PATIENT
  Age: 30 Year
  Sex: Male

DRUGS (3)
  1. ABILIFY [Suspect]
     Indication: DEPRESSION
     Route: 048
     Dates: start: 20090501
  2. SEROQUEL [Suspect]
  3. LEXAPRO [Concomitant]

REACTIONS (2)
  - AKATHISIA [None]
  - DYSTONIA [None]
